FAERS Safety Report 6133734-1 (Version None)
Quarter: 2009Q1

REPORT INFORMATION
  Report Type: 
  Country: None (occurrence: None)
  Receive Date: 20090326
  Receipt Date: 20090319
  Transmission Date: 20090719
  Serious: Yes (Hospitalization)
  Sender: FDA-Public Use
  Company Number: B0566790A

PATIENT
  Age: 47 Year
  Sex: Female

DRUGS (2)
  1. ZYBAN [Suspect]
     Dosage: 300MG PER DAY
     Route: 048
     Dates: start: 20090130, end: 20090212
  2. PROPAVAN [Concomitant]

REACTIONS (5)
  - CHEST DISCOMFORT [None]
  - OEDEMA MOUTH [None]
  - PHARYNGEAL OEDEMA [None]
  - PRURITUS [None]
  - RASH [None]
